FAERS Safety Report 16626296 (Version 1)
Quarter: 2019Q3

REPORT INFORMATION
  Report Type: Spontaneous
  Country: GR (occurrence: GR)
  Receive Date: 20190724
  Receipt Date: 20190724
  Transmission Date: 20191004
  Serious: Yes (Hospitalization)
  Sender: FDA-Public Use
  Company Number: GR-SA-2019SA195181

PATIENT
  Age: 65 Year
  Sex: Male
  Weight: 83 kg

DRUGS (5)
  1. FLUOROURACIL. [Suspect]
     Active Substance: FLUOROURACIL
     Indication: COLON CANCER
     Dosage: 1900 MG, UNK
     Route: 041
     Dates: start: 20051220, end: 20051221
  2. NORVASC [Concomitant]
     Active Substance: AMLODIPINE BESYLATE
     Indication: HYPERTENSION
     Dosage: 5 MG, UNK
     Route: 048
     Dates: start: 2000
  3. OMNIC [Concomitant]
     Active Substance: TAMSULOSIN HYDROCHLORIDE
     Indication: HYPERTENSION
     Dosage: 0.4 MG, UNK
     Route: 048
     Dates: start: 2000
  4. ELOXATIN [Suspect]
     Active Substance: OXALIPLATIN
     Indication: COLON CANCER
     Dosage: 161 MG, UNK
     Route: 041
     Dates: start: 20051220, end: 20051220
  5. LEUCOVORINE [Concomitant]
     Active Substance: LEUCOVORIN
     Indication: COLON CANCER
     Dosage: 380 MG, UNK
     Route: 042
     Dates: start: 20051220, end: 20051221

REACTIONS (1)
  - Angina pectoris [Recovered/Resolved]

NARRATIVE: CASE EVENT DATE: 20051221
